FAERS Safety Report 5981624-7 (Version None)
Quarter: 2008Q4

REPORT INFORMATION
  Report Type: 
  Country: None (occurrence: None)
  Receive Date: 20081205
  Receipt Date: 20081126
  Transmission Date: 20090506
  Serious: Yes (Hospitalization, Other)
  Sender: FDA-Public Use
  Company Number: DE-AMGEN-UK293301

PATIENT
  Sex: Female

DRUGS (17)
  1. PANITUMUMAB [Suspect]
     Indication: COLORECTAL CANCER
     Route: 042
     Dates: start: 20080318
  2. IRINOTECAN HYDROCHLORIDE [Suspect]
  3. FLUOROURACIL [Suspect]
  4. LEUCOVORIN CALCIUM [Suspect]
  5. GRANISETRON [Concomitant]
     Route: 042
     Dates: start: 20080301
  6. DEXAMETHASONE [Concomitant]
     Route: 042
     Dates: start: 20080301
  7. FORTECORTIN [Concomitant]
  8. METAMIZOLE [Concomitant]
     Route: 048
     Dates: start: 20080902, end: 20080903
  9. PANTROPAZOLE [Concomitant]
     Route: 048
     Dates: start: 20080318
  10. LORAZEPAM [Concomitant]
     Route: 048
     Dates: start: 20080318
  11. METRONIDAZOLE [Concomitant]
     Route: 061
     Dates: start: 20080415
  12. LOPERAMIDE HCL [Concomitant]
     Route: 048
     Dates: start: 20080404
  13. DOXYCYCLINE [Concomitant]
     Route: 048
     Dates: start: 20080614
  14. MAGNESIUM SULFATE [Concomitant]
     Route: 048
     Dates: start: 20080610
  15. FUCICORT [Concomitant]
     Dates: start: 20080624
  16. KLACID [Concomitant]
     Route: 048
  17. METOCLOPRAMIDE [Concomitant]

REACTIONS (2)
  - DEEP VEIN THROMBOSIS [None]
  - PULMONARY EMBOLISM [None]
